FAERS Safety Report 12835726 (Version 1)
Quarter: 2016Q4

REPORT INFORMATION
  Report Type: Spontaneous
  Country: GB (occurrence: GB)
  Receive Date: 20161011
  Receipt Date: 20161011
  Transmission Date: 20170207
  Serious: Yes (Hospitalization)
  Sender: FDA-Public Use
  Company Number: GB-TEVA-700415ACC

PATIENT
  Age: 85 Year
  Sex: Female

DRUGS (12)
  1. DOXAZOSIN [Suspect]
     Active Substance: DOXAZOSIN\DOXAZOSIN MESYLATE
     Indication: HYPERTENSION
     Dosage: 4 MILLIGRAM DAILY;
     Route: 048
     Dates: end: 20160616
  2. FUROSEMIDE. [Concomitant]
     Active Substance: FUROSEMIDE
  3. ASPIRIN. [Concomitant]
     Active Substance: ASPIRIN
  4. MOVELAT [Concomitant]
  5. PARACETAMOL [Concomitant]
     Active Substance: ACETAMINOPHEN
  6. PREDNISOLONE. [Concomitant]
     Active Substance: PREDNISOLONE
  7. SERETIDE [Concomitant]
     Active Substance: FLUTICASONE PROPIONATE\SALMETEROL XINAFOATE
  8. SIMVASTATIN. [Concomitant]
     Active Substance: SIMVASTATIN
  9. SALBUTAMOL [Concomitant]
     Active Substance: ALBUTEROL
  10. TIOTROPIUM BROMIDE [Concomitant]
     Active Substance: TIOTROPIUM BROMIDE
  11. DILZEM SR [Suspect]
     Active Substance: DILTIAZEM
     Indication: PROPHYLAXIS
     Dosage: 120 MILLIGRAM DAILY;
     Route: 048
     Dates: end: 20160616
  12. DOXYCYCLINE. [Concomitant]
     Active Substance: DOXYCYCLINE

REACTIONS (9)
  - Eye movement disorder [Recovered/Resolved]
  - Dizziness [Unknown]
  - Ventricular extrasystoles [Unknown]
  - Pallor [Recovered/Resolved]
  - Bradycardia [Recovered/Resolved]
  - Social avoidant behaviour [Recovered/Resolved]
  - Presyncope [Recovered/Resolved]
  - Trifascicular block [Unknown]
  - Aphasia [Recovered/Resolved]

NARRATIVE: CASE EVENT DATE: 201606
